FAERS Safety Report 6923588-5 (Version None)
Quarter: 2010Q3

REPORT INFORMATION
  Report Type: 
  Country: None (occurrence: None)
  Receive Date: 20100813
  Receipt Date: 20100806
  Transmission Date: 20110219
  Serious: Yes (Death)
  Sender: FDA-Public Use
  Company Number: A0875327A

PATIENT
  Age: 65 Year
  Sex: Female

DRUGS (1)
  1. COREG [Suspect]
     Indication: PRODUCT USED FOR UNKNOWN INDICATION
     Dosage: 6.25MG UNKNOWN
     Route: 065
     Dates: start: 20030718

REACTIONS (1)
  - DEATH [None]
